FAERS Safety Report 16990288 (Version 1)
Quarter: 2019Q4

REPORT INFORMATION
  Report Type: Spontaneous
  Country: US (occurrence: US)
  Receive Date: 20191102
  Receipt Date: 20191102
  Transmission Date: 20200122
  Serious: Yes (Other)
  Sender: FDA-Public Use
  Company Number: None

PATIENT
  Age: 16 Year
  Sex: Female

DRUGS (1)
  1. QBREXZA [Suspect]
     Active Substance: GLYCOPYRRONIUM TOSYLATE
     Indication: HYPERHIDROSIS

REACTIONS (5)
  - Cold sweat [None]
  - Visual impairment [None]
  - Pupil fixed [None]
  - Peripheral coldness [None]
  - Headache [None]

NARRATIVE: CASE EVENT DATE: 20191030
